FAERS Safety Report 6859447-6 (Version None)
Quarter: 2010Q3

REPORT INFORMATION
  Report Type: 
  Country: None (occurrence: None)
  Receive Date: 20100716
  Receipt Date: 20100706
  Transmission Date: 20110219
  Serious: Yes (Other)
  Sender: FDA-Public Use
  Company Number: 2010US002701

PATIENT
  Age: 56 Year
  Sex: Female

DRUGS (6)
  1. VESICARE [Suspect]
     Indication: PRODUCT USED FOR UNKNOWN INDICATION
     Dosage: 5 MG,  /D, ORAL ; 20 MG,  /D, ORAL ; ORAL
     Route: 048
     Dates: start: 20090701, end: 20090101
  2. VESICARE [Suspect]
     Indication: PRODUCT USED FOR UNKNOWN INDICATION
     Dosage: 5 MG,  /D, ORAL ; 20 MG,  /D, ORAL ; ORAL
     Route: 048
     Dates: end: 20090701
  3. VESICARE [Suspect]
     Indication: PRODUCT USED FOR UNKNOWN INDICATION
     Dosage: 5 MG,  /D, ORAL ; 20 MG,  /D, ORAL ; ORAL
     Route: 048
     Dates: start: 20090101
  4. PROSTAGLANDINS [Concomitant]
  5. ALPHA-2 AGONIST [Concomitant]
  6. NEURONTIN [Concomitant]

REACTIONS (7)
  - DRUG TOXICITY [None]
  - INTRAOCULAR PRESSURE INCREASED [None]
  - MYDRIASIS [None]
  - OVERDOSE [None]
  - PUPILLARY REFLEX IMPAIRED [None]
  - TREATMENT FAILURE [None]
  - VISION BLURRED [None]
